FAERS Safety Report 5402984-1 (Version None)
Quarter: 2007Q3

REPORT INFORMATION
  Report Type: 
  Country: None (occurrence: None)
  Receive Date: 20070801
  Receipt Date: 20070717
  Transmission Date: 20080115
  Serious: Yes (Life-Threatening)
  Sender: FDA-Public Use
  Company Number: SE-GENENTECH-245356

PATIENT
  Sex: Male
  Weight: 95 kg

DRUGS (14)
  1. AVASTIN [Suspect]
     Indication: ACUTE MYELOID LEUKAEMIA
     Dosage: 495 MG, UNK
     Route: 042
     Dates: start: 20070326, end: 20070526
  2. CYTARABINE [Suspect]
     Indication: ACUTE MYELOID LEUKAEMIA
     Dosage: 440 MG, UNK
     Route: 042
     Dates: start: 20070326, end: 20070517
  3. KEPPRA [Suspect]
     Indication: EPILEPSY
     Dosage: 1500 MG, QD
     Route: 048
     Dates: start: 20070321, end: 20070603
  4. KEPPRA [Suspect]
     Dosage: 2000 MG, QD
     Dates: start: 20070603, end: 20070617
  5. FRISIUM [Concomitant]
     Indication: DRUG USE FOR UNKNOWN INDICATION
  6. FUNGIZONE [Concomitant]
     Indication: DRUG USE FOR UNKNOWN INDICATION
     Dates: start: 20070521, end: 20070609
  7. HALDOL [Concomitant]
     Indication: DRUG USE FOR UNKNOWN INDICATION
     Dates: start: 20070526, end: 20070608
  8. FLUCONAZOLE [Concomitant]
     Indication: DRUG USE FOR UNKNOWN INDICATION
     Dates: start: 20070526, end: 20070608
  9. LANOXIN [Concomitant]
     Indication: DRUG USE FOR UNKNOWN INDICATION
     Dates: start: 20070530, end: 20070619
  10. THIAMINE [Concomitant]
     Indication: DRUG USE FOR UNKNOWN INDICATION
     Dates: start: 20070512, end: 20070619
  11. CIPROFLOXACIN [Concomitant]
     Indication: DRUG USE FOR UNKNOWN INDICATION
     Dates: start: 20070601, end: 20070609
  12. MERONEM [Concomitant]
     Indication: DRUG USE FOR UNKNOWN INDICATION
     Dosage: UNK, UNK
     Dates: start: 20070608, end: 20070614
  13. METOPROLOL SUCCINATE [Concomitant]
     Indication: DRUG USE FOR UNKNOWN INDICATION
     Dates: start: 20070521, end: 20070619
  14. KONAKION [Concomitant]
     Indication: DRUG USE FOR UNKNOWN INDICATION
     Dates: start: 20070525, end: 20070616

REACTIONS (1)
  - ENCEPHALOPATHY [None]
